FAERS Safety Report 10813574 (Version 2)
Quarter: 2015Q2

REPORT INFORMATION
  Report Type: Spontaneous
  Country: FR (occurrence: FR)
  Receive Date: 20150218
  Receipt Date: 20150401
  Transmission Date: 20150821
  Serious: Yes (Other)
  Sender: FDA-Public Use
  Company Number: FR-AMGEN-FRASP2015014419

PATIENT
  Age: 66 Year
  Sex: Male
  Weight: 110 kg

DRUGS (6)
  1. FUROSEMIDE. [Concomitant]
     Active Substance: FUROSEMIDE
     Dosage: UNK
  2. AMLODIPINE [Concomitant]
     Active Substance: AMLODIPINE BESYLATE
     Dosage: UNK
  3. NOVATREX ^LEDERLE^ [Concomitant]
     Indication: ANKYLOSING SPONDYLITIS
     Dosage: UNK
     Route: 048
     Dates: start: 2005
  4. MEDIATENSYL                        /00631801/ [Concomitant]
     Active Substance: URAPIDIL
     Dosage: UNK
  5. NAPROXENE SODIQUE EG [Concomitant]
     Dosage: UNK
  6. ENBREL [Suspect]
     Active Substance: ETANERCEPT
     Indication: ANKYLOSING SPONDYLITIS
     Dosage: 50 UNK, WEEKLY
     Route: 058
     Dates: start: 200406, end: 20141229

REACTIONS (2)
  - Superficial spreading melanoma stage unspecified [Unknown]
  - Basal cell carcinoma [Unknown]

NARRATIVE: CASE EVENT DATE: 201412
